FAERS Safety Report 4442424-2 (Version None)
Quarter: 2004Q3

REPORT INFORMATION
  Report Type: 
  Country: None (occurrence: None)
  Receive Date: 20040903
  Receipt Date: 20040706
  Transmission Date: 20050211
  Serious: Yes (Other)
  Sender: FDA-Public Use
  Company Number: 2004UW13916

PATIENT
  Age: 77 Year
  Sex: Female
  Weight: 61.2356 kg

DRUGS (6)
  1. CRESTOR [Suspect]
     Indication: BLOOD CHOLESTEROL INCREASED
     Dosage: 10 MG QD PO
     Route: 048
     Dates: start: 20040101, end: 20040501
  2. LIPITOR [Concomitant]
  3. ZETIA [Concomitant]
  4. DIOVAN [Concomitant]
  5. TOPROL-XL [Concomitant]
  6. SOLU-MEDROL [Concomitant]

REACTIONS (3)
  - FEELING HOT [None]
  - INSOMNIA [None]
  - MYALGIA [None]
